FAERS Safety Report 21266225 (Version 1)
Quarter: 2022Q3

REPORT INFORMATION
  Report Type: Spontaneous
  Country: US (occurrence: US)
  Receive Date: 20220829
  Receipt Date: 20220829
  Transmission Date: 20221026
  Serious: No
  Sender: FDA-Public Use
  Company Number: US-ELI_LILLY_AND_COMPANY-US202208000569

PATIENT
  Sex: Female

DRUGS (2)
  1. BEBTELOVIMAB [Suspect]
     Active Substance: BEBTELOVIMAB
     Indication: COVID-19
     Dosage: UNK, SINGLE
     Route: 065
     Dates: start: 20220717, end: 20220717
  2. PREDNISONE [Concomitant]
     Active Substance: PREDNISONE
     Indication: COVID-19

REACTIONS (4)
  - Cystitis [Unknown]
  - Illness [Unknown]
  - Depressed mood [Unknown]
  - Nausea [Unknown]
